FAERS Safety Report 9220579 (Version 3)
Quarter: 2013Q2

REPORT INFORMATION
  Report Type: Spontaneous
  Country: FR (occurrence: FR)
  Receive Date: 20130409
  Receipt Date: 20130426
  Transmission Date: 20140414
  Serious: Yes (Death, Life-Threatening, Hospitalization, Other)
  Sender: FDA-Public Use
  Company Number: FR-ASTRAZENECA-2012SE90982

PATIENT
  Age: 28382 Day
  Sex: Male

DRUGS (7)
  1. ZESTRIL [Suspect]
     Route: 048
     Dates: end: 201210
  2. PRADAXA [Suspect]
     Indication: ATRIAL FIBRILLATION
     Route: 048
     Dates: start: 20121011, end: 20121017
  3. CARDENSIEL [Suspect]
     Indication: ATRIAL FIBRILLATION
     Route: 048
     Dates: start: 20121011, end: 20121017
  4. LASILIX [Suspect]
     Route: 048
     Dates: end: 201210
  5. SECALIP [Suspect]
     Indication: HYPERCHOLESTEROLAEMIA
     Route: 048
     Dates: end: 201210
  6. PERMIXON [Suspect]
     Route: 048
     Dates: end: 201210
  7. LEVOTHYROX [Concomitant]
     Route: 048

REACTIONS (7)
  - Septic shock [Unknown]
  - Multi-organ failure [Unknown]
  - Lung infection [Unknown]
  - Staphylococcal sepsis [Unknown]
  - Candida sepsis [Fatal]
  - Ileus [Unknown]
  - Pancreatitis acute [Recovering/Resolving]
